FAERS Safety Report 12308450 (Version 1)
Quarter: 2016Q2

REPORT INFORMATION
  Report Type: Spontaneous
  Country: BR (occurrence: BR)
  Receive Date: 20160427
  Receipt Date: 20160427
  Transmission Date: 20160815
  Serious: Yes (Death)
  Sender: FDA-Public Use
  Company Number: BR-ROCHE-1747858

PATIENT
  Age: 2 Year
  Sex: Female

DRUGS (2)
  1. ACTILYSE [Suspect]
     Active Substance: ALTEPLASE
     Indication: PRODUCT USED FOR UNKNOWN INDICATION
     Route: 042
     Dates: start: 20160122, end: 20160122
  2. MORPHINE [Concomitant]
     Active Substance: MORPHINE

REACTIONS (6)
  - Cardiac failure [Fatal]
  - Pneumonia [Fatal]
  - Brain cancer metastatic [Fatal]
  - Metastases to central nervous system [Fatal]
  - Primitive neuroectodermal tumour [Fatal]
  - Respiratory failure [Fatal]
